FAERS Safety Report 15627886 (Version 1)
Quarter: 2018Q4

REPORT INFORMATION
  Report Type: Spontaneous
  Country: None (occurrence: JP)
  Receive Date: 20181116
  Receipt Date: 20181116
  Transmission Date: 20190205
  Serious: Yes (Other)
  Sender: FDA-Public Use
  Company Number: JP-LABORATOIRE HRA PHARMA-2058961

PATIENT
  Age: 85 Year
  Sex: Male

DRUGS (3)
  1. METOPIRONE [Suspect]
     Active Substance: METYRAPONE
     Indication: PITUITARY-DEPENDENT CUSHING^S SYNDROME
     Route: 048
     Dates: start: 20171117
  2. AMPICILLIN SODIUM. [Concomitant]
     Active Substance: AMPICILLIN SODIUM
  3. SULBACTAM SODIUM [Concomitant]
     Active Substance: SULBACTAM SODIUM

REACTIONS (2)
  - Transaminases increased [Unknown]
  - Liver injury [Unknown]

NARRATIVE: CASE EVENT DATE: 20171127
